FAERS Safety Report 6882880-3 (Version None)
Quarter: 2010Q3

REPORT INFORMATION
  Report Type: 
  Country: None (occurrence: None)
  Receive Date: 20100702
  Receipt Date: 20090630
  Transmission Date: 20110219
  Serious: Yes (Other)
  Sender: FDA-Public Use
  Company Number: 2009235298

PATIENT
  Age: 45 Year
  Sex: Female
  Weight: 62.6 kg

DRUGS (4)
  1. ZOLOFT [Suspect]
     Dates: start: 20090501
  2. LYRICA [Suspect]
     Dosage: FREQUENCY: 2X/DAY, EVERY DAY;
     Dates: start: 20090601
  3. ADVIL LIQUI-GELS [Suspect]
     Indication: MYALGIA
     Dates: start: 20090601
  4. KLONOPIN [Concomitant]

REACTIONS (8)
  - ABDOMINAL DISCOMFORT [None]
  - DEPRESSION [None]
  - DIARRHOEA [None]
  - FIBROMYALGIA [None]
  - GASTROOESOPHAGEAL REFLUX DISEASE [None]
  - MUSCLE SPASMS [None]
  - MYALGIA [None]
  - SOMNOLENCE [None]
